FAERS Safety Report 23971036 (Version 1)
Quarter: 2024Q2

REPORT INFORMATION
  Report Type: Spontaneous
  Country: US (occurrence: None)
  Receive Date: 20240612
  Receipt Date: 20240612
  Transmission Date: 20240716
  Serious: Yes (unspecified)
  Sender: FDA-Public Use
  Company Number: None

PATIENT
  Age: 63 Year
  Sex: Female

DRUGS (2)
  1. BIMZELX [Suspect]
     Active Substance: BIMEKIZUMAB-BKZX
     Indication: Psoriasis
     Dosage: FREQUENCY : MONTHLY;?
     Route: 058
     Dates: start: 20240326, end: 20240612
  2. OTEZLA [Concomitant]
     Active Substance: APREMILAST
     Dates: start: 20240326

REACTIONS (3)
  - Stomatitis [None]
  - SARS-CoV-2 test positive [None]
  - Herpes simplex [None]

NARRATIVE: CASE EVENT DATE: 20240516
